FAERS Safety Report 5332656-3 (Version None)
Quarter: 2007Q2

REPORT INFORMATION
  Report Type: 
  Country: None (occurrence: None)
  Receive Date: 20070523
  Receipt Date: 20070515
  Transmission Date: 20071010
  Serious: Yes (Hospitalization, Other)
  Sender: FDA-Public Use
  Company Number: US-PFIZER INC-2006045290

PATIENT
  Sex: Male
  Weight: 74.8 kg

DRUGS (3)
  1. BEXTRA [Suspect]
     Indication: PAIN
  2. BEXTRA [Suspect]
     Indication: INFLAMMATION
  3. BEXTRA [Suspect]
     Indication: PAIN IN EXTREMITY

REACTIONS (1)
  - CEREBROVASCULAR ACCIDENT [None]
